FAERS Safety Report 9505507 (Version 1)
Quarter: 2013Q1

REPORT INFORMATION
  Report Type: Spontaneous
  Country: US (occurrence: None)
  Receive Date: 20130220
  Receipt Date: 20130220
  Transmission Date: 20140127
  Serious: No
  Sender: FDA-Public Use
  Company Number: 1000041799

PATIENT
  Age: 52 Year
  Sex: Male

DRUGS (9)
  1. VIIBYRD (VILAZODONE HYDROCHLORIDE) [Suspect]
     Dosage: 10 MG (10 MG, 1 IN 1 D), ORAL
     Route: 048
     Dates: start: 20130108, end: 20130114
  2. VIIBYRD (VILAZODONE HYDROCHLORIDE) [Suspect]
     Indication: MANIA
     Dosage: 10 MG (10 MG, 1 IN 1 D), ORAL
     Route: 048
     Dates: start: 20130108, end: 20130114
  3. VIIBYRD (VILAZODONE HYDROCHLORIDE) [Suspect]
     Indication: SCHIZOPHRENIA
     Dosage: 10 MG (10 MG, 1 IN 1 D), ORAL
     Route: 048
     Dates: start: 20130108, end: 20130114
  4. PROZAC (FLUOXETINE HYDROCHLORIDE) (FLUOXETINE HYDROCHLORIDE) [Concomitant]
  5. LISINOPRIL (LISINOPRIL) [Concomitant]
  6. DEPAKOTE (VALPROATE SEMISODIUM) (VALPROATE SEMISODIUM) [Concomitant]
  7. SIMVASTATIN (SIMVASTATIN) (SIMVASTATIN) [Concomitant]
  8. METFORMIN (METFORMIN) (METFORMIN) [Concomitant]
  9. XANAX (ALPRAZOLAM) (ALPRAZOLAM) [Concomitant]

REACTIONS (2)
  - Diarrhoea [None]
  - Off label use [None]
